FAERS Safety Report 23037836 (Version 1)
Quarter: 2023Q4

REPORT INFORMATION
  Report Type: Spontaneous
  Country: US (occurrence: None)
  Receive Date: 20231005
  Receipt Date: 20231005
  Transmission Date: 20240110
  Serious: Yes (Hospitalization)
  Sender: FDA-Public Use
  Company Number: None

PATIENT
  Age: 62 Year
  Sex: Male

DRUGS (1)
  1. ARANESP [Suspect]
     Active Substance: DARBEPOETIN ALFA
     Indication: Anaemia of chronic disease
     Dosage: OTHER STRENGTH : 100MCG/0.5ML;?OTHER QUANTITY : 100MCG/0.5ML;?
     Route: 058

REACTIONS (5)
  - Localised infection [None]
  - Loss of consciousness [None]
  - Unresponsive to stimuli [None]
  - Hypotension [None]
  - Therapy interrupted [None]

NARRATIVE: CASE EVENT DATE: 20230921
